FAERS Safety Report 8160310-1 (Version None)
Quarter: 2012Q1

REPORT INFORMATION
  Report Type: 
  Country: None (occurrence: None)
  Receive Date: 20120223
  Receipt Date: 20120223
  Transmission Date: 20120608
  Serious: Yes (Other)
  Sender: FDA-Public Use
  Company Number: None

PATIENT
  Age: 20 Year
  Sex: Male
  Weight: 58.513 kg

DRUGS (1)
  1. LARIAM [Suspect]
     Indication: PROPHYLAXIS
     Dosage: ONE PILL
     Route: 048
     Dates: start: 19921216, end: 19930326

REACTIONS (1)
  - QUALITY OF LIFE DECREASED [None]
